FAERS Safety Report 6345745-1 (Version None)
Quarter: 2009Q3

REPORT INFORMATION
  Report Type: 
  Country: None (occurrence: None)
  Receive Date: 20090909
  Receipt Date: 20090903
  Transmission Date: 20100115
  Serious: Yes (Hospitalization)
  Sender: FDA-Public Use
  Company Number: US-ASTRAZENECA-2009SE11549

PATIENT
  Age: 28854 Day
  Sex: Female

DRUGS (11)
  1. TOPROL-XL [Suspect]
     Route: 048
  2. NATEGLINIDE CODE NOT BROKEN [Concomitant]
     Indication: GLUCOSE TOLERANCE IMPAIRED
     Dates: start: 20020923, end: 20090201
  3. VALSARTAN CODE NOT BROKEN [Concomitant]
     Indication: CARDIOVASCULAR DISORDER
     Dates: start: 20020923, end: 20090201
  4. SYNTHROID [Concomitant]
  5. ALTACE [Concomitant]
  6. LIPITOR [Concomitant]
  7. ATIVAN [Concomitant]
  8. DICLOFENAC [Concomitant]
  9. FOLEX [Concomitant]
  10. MIRALAX [Concomitant]
  11. DARVOCET-N 100 [Concomitant]

REACTIONS (3)
  - BRADYCARDIA [None]
  - DEEP VEIN THROMBOSIS [None]
  - URINARY TRACT INFECTION [None]
